FAERS Safety Report 14488118 (Version 3)
Quarter: 2018Q2

REPORT INFORMATION
  Report Type: Spontaneous
  Country: NL (occurrence: NL)
  Receive Date: 20180205
  Receipt Date: 20180524
  Transmission Date: 20180711
  Serious: Yes (Other)
  Sender: FDA-Public Use
  Company Number: NL-MYLANLABS-2018M1006898

PATIENT
  Age: 64 Year
  Sex: Male

DRUGS (4)
  1. PARODONTAX                         /00133001/ [Concomitant]
     Indication: DEPRESSION
     Dosage: UNK UNK, UNKNOWN FREQ.
  2. BICALUTAMIDE. [Suspect]
     Active Substance: BICALUTAMIDE
     Indication: PRODUCT USED FOR UNKNOWN INDICATION
     Dosage: UNK UNK, UNKNOWN FREQ.
  3. ELIGARD [Suspect]
     Active Substance: LEUPROLIDE ACETATE
     Indication: PROSTATE CANCER
     Dosage: 45 MG, EVERY 6 MONTHS
     Route: 058
  4. XTANDI [Suspect]
     Active Substance: ENZALUTAMIDE
     Indication: PROSTATE CANCER
     Dosage: 160 MG, QD
     Route: 048
     Dates: start: 201608

REACTIONS (9)
  - Feeling abnormal [Unknown]
  - Dyspnoea [Not Recovered/Not Resolved]
  - Fatigue [Unknown]
  - Tendonitis [Recovering/Resolving]
  - Hot flush [Not Recovered/Not Resolved]
  - Drug ineffective [Unknown]
  - Prostatic specific antigen increased [Not Recovered/Not Resolved]
  - Metastases to lymph nodes [Not Recovered/Not Resolved]
  - Limb discomfort [Not Recovered/Not Resolved]

NARRATIVE: CASE EVENT DATE: 201608
